FAERS Safety Report 9477063 (Version 1)
Quarter: 2013Q3

REPORT INFORMATION
  Report Type: Spontaneous
  Country: SE (occurrence: SE)
  Receive Date: 20130826
  Receipt Date: 20130826
  Transmission Date: 20140515
  Serious: Yes (Death)
  Sender: FDA-Public Use
  Company Number: PHHY2013SE091769

PATIENT
  Age: 61 Year
  Sex: Male

DRUGS (2)
  1. VOLTAREN [Suspect]
     Indication: PAIN
     Dosage: UNK UKN, UNK
     Dates: start: 201302
  2. ALVEDON [Concomitant]
     Indication: PAIN
     Dosage: UNK UKN, UNK
     Dates: start: 201302

REACTIONS (2)
  - Metastatic malignant melanoma [Fatal]
  - Pain [Unknown]
